FAERS Safety Report 25351778 (Version 1)
Quarter: 2025Q2

REPORT INFORMATION
  Report Type: Spontaneous
  Country: US (occurrence: US)
  Receive Date: 20250523
  Receipt Date: 20250523
  Transmission Date: 20250717
  Serious: No
  Sender: HIKMA
  Company Number: US-HIKMA PHARMACEUTICALS USA INC.-US-H14001-24-09285

PATIENT
  Sex: Female
  Weight: 68.03 kg

DRUGS (1)
  1. FLUTICASONE PROPIONATE [Suspect]
     Active Substance: FLUTICASONE PROPIONATE
     Indication: Rhinorrhoea
     Dosage: 100 MICROGRAMS PER NOSTRIL, QD
     Route: 045
     Dates: start: 20240914, end: 20240916

REACTIONS (7)
  - Nasal discomfort [Recovered/Resolved]
  - Condition aggravated [Recovered/Resolved]
  - Eye disorder [Recovered/Resolved]
  - Gastrointestinal disorder [Recovered/Resolved]
  - Sneezing [Recovered/Resolved]
  - Drug ineffective [Recovered/Resolved]
  - Intentional product use issue [Recovered/Resolved]

NARRATIVE: CASE EVENT DATE: 20240914
